FAERS Safety Report 19046318 (Version 9)
Quarter: 2022Q2

REPORT INFORMATION
  Report Type: Spontaneous
  Country: US (occurrence: US)
  Receive Date: 20210323
  Receipt Date: 20220419
  Transmission Date: 20220721
  Serious: Yes (Hospitalization, Other)
  Sender: FDA-Public Use
  Company Number: US-ELI_LILLY_AND_COMPANY-US202103007416

PATIENT
  Sex: Male

DRUGS (15)
  1. BASAGLAR [Suspect]
     Active Substance: INSULIN GLARGINE
     Indication: Type 1 diabetes mellitus
     Dosage: 30 U, EACH MORNING
     Route: 058
     Dates: start: 2018
  2. BASAGLAR [Suspect]
     Active Substance: INSULIN GLARGINE
     Indication: Type 1 diabetes mellitus
     Dosage: 30 U, EACH MORNING
     Route: 058
     Dates: start: 2018
  3. BASAGLAR [Suspect]
     Active Substance: INSULIN GLARGINE
     Indication: Type 1 diabetes mellitus
     Dosage: 30 U, EACH MORNING
     Route: 058
     Dates: start: 2018
  4. BASAGLAR [Suspect]
     Active Substance: INSULIN GLARGINE
     Indication: Type 2 diabetes mellitus
     Dosage: 24 U, EACH MORNING (14-24 UNITS, DAILY)
     Route: 058
     Dates: end: 20201009
  5. BASAGLAR [Suspect]
     Active Substance: INSULIN GLARGINE
     Indication: Type 2 diabetes mellitus
     Dosage: 24 U, EACH MORNING (14-24 UNITS, DAILY)
     Route: 058
     Dates: end: 20201009
  6. BASAGLAR [Suspect]
     Active Substance: INSULIN GLARGINE
     Indication: Type 2 diabetes mellitus
     Dosage: 24 U, EACH MORNING (14-24 UNITS, DAILY)
     Route: 058
     Dates: end: 20201009
  7. BASAGLAR [Suspect]
     Active Substance: INSULIN GLARGINE
     Dosage: 10 U, BID
     Route: 058
     Dates: start: 20210809
  8. BASAGLAR [Suspect]
     Active Substance: INSULIN GLARGINE
     Dosage: 10 U, BID
     Route: 058
     Dates: start: 20210809
  9. BASAGLAR [Suspect]
     Active Substance: INSULIN GLARGINE
     Dosage: 10 U, BID
     Route: 058
     Dates: start: 20210809
  10. HUMALOG [Suspect]
     Active Substance: INSULIN LISPRO
     Indication: Product used for unknown indication
     Dosage: 10 U, TID (5-10 UNITS THREE TIMES DAILY BEFORE EACH MEAL)
     Route: 058
     Dates: start: 20200908
  11. VALPROIC ACID [Suspect]
     Active Substance: VALPROIC ACID
     Indication: Mood swings
     Dosage: UNK, UNKNOWN
     Route: 065
  12. NOVOLOG [Concomitant]
     Active Substance: INSULIN ASPART
     Indication: Product used for unknown indication
  13. BAQSIMI [Concomitant]
     Active Substance: GLUCAGON
     Indication: Hypoglycaemia
  14. SULFAMETHOXAZOLE\TRIMETHOPRIM [Concomitant]
     Active Substance: SULFAMETHOXAZOLE\TRIMETHOPRIM
     Indication: Product used for unknown indication
  15. KETOCONAZOLE [Concomitant]
     Active Substance: KETOCONAZOLE
     Indication: Product used for unknown indication

REACTIONS (48)
  - Encephalopathy [Not Recovered/Not Resolved]
  - Diabetic ketoacidosis [Not Recovered/Not Resolved]
  - Diabetic hyperglycaemic coma [Unknown]
  - Diabetic coma [Unknown]
  - Acute respiratory failure [Recovered/Resolved]
  - Coma [Not Recovered/Not Resolved]
  - Arteriosclerosis [Unknown]
  - Brain injury [Unknown]
  - Gait disturbance [Unknown]
  - Palpitations [Unknown]
  - Sepsis [Recovered/Resolved]
  - Blindness [Unknown]
  - Blood pressure increased [Unknown]
  - Brain oedema [Unknown]
  - Renal disorder [Unknown]
  - Organ failure [Unknown]
  - Seizure [Unknown]
  - Pneumonitis [Unknown]
  - Hypoglycaemic coma [Unknown]
  - Shock hypoglycaemic [Unknown]
  - Insomnia [Unknown]
  - Somnolence [Unknown]
  - Abdominal discomfort [Unknown]
  - Abdominal distension [Unknown]
  - Macular oedema [Unknown]
  - Fatigue [Unknown]
  - Influenza like illness [Unknown]
  - Lower respiratory tract infection [Unknown]
  - Weight increased [Unknown]
  - Normocytic anaemia [Unknown]
  - Diarrhoea [Unknown]
  - Blood osmolarity increased [Unknown]
  - Hyperkalaemia [Recovered/Resolved]
  - Urinary incontinence [Unknown]
  - Acute kidney injury [Recovered/Resolved]
  - Hypernatraemia [Recovered/Resolved]
  - Malnutrition [Unknown]
  - Cognitive disorder [Not Recovered/Not Resolved]
  - Diabetes mellitus inadequate control [Unknown]
  - Thyroid function test abnormal [Unknown]
  - Glycosylated haemoglobin increased [Unknown]
  - Peripheral swelling [Unknown]
  - Mental impairment [Recovered/Resolved]
  - Adjustment disorder with mixed anxiety and depressed mood [Not Recovered/Not Resolved]
  - Injection site injury [Unknown]
  - Blood glucose increased [Unknown]
  - Drug ineffective [Unknown]
  - Inappropriate schedule of product administration [Unknown]

NARRATIVE: CASE EVENT DATE: 20150101
